FAERS Safety Report 18381396 (Version 1)
Quarter: 2020Q4

REPORT INFORMATION
  Report Type: Other
  Country: KR (occurrence: KR)
  Receive Date: 20201014
  Receipt Date: 20201014
  Transmission Date: 20210114
  Serious: Yes (Life-Threatening, Other)
  Sender: FDA-Public Use
  Company Number: KR-ROCHE-2693443

PATIENT
  Age: 39 Year
  Sex: Male

DRUGS (2)
  1. ACTILYSE [Suspect]
     Active Substance: ALTEPLASE
     Dosage: OVER 60 MINUTES FREQUENCY: 1, FREQUENCY UNIT: 809
     Route: 042
  2. ACTILYSE [Suspect]
     Active Substance: ALTEPLASE
     Indication: CEREBROVASCULAR ACCIDENT
     Dosage: BOLUS OVER 1 MINUTE FREQUENCY: 1, FREQUENCY UNIT: 809
     Route: 042

REACTIONS (2)
  - Anaphylactoid reaction [Recovered/Resolved]
  - Cerebral artery occlusion [Recovered/Resolved]
